FAERS Safety Report 8807930 (Version 1)
Quarter: 2012Q4

REPORT INFORMATION
  Report Type: 
  Country: US (occurrence: US)
  Receive Date: 20120925
  Receipt Date: 20120925
  Transmission Date: 20130627
  Serious: No
  Sender: FDA-Public Use
  Company Number: US-JNJFOC-20120906254

PATIENT
  Sex: Female
  Weight: 102.06 kg

DRUGS (1)
  1. DURAGESIC [Suspect]
     Indication: SCIATICA
     Route: 062
     Dates: start: 2011

REACTIONS (4)
  - Nausea [Not Recovered/Not Resolved]
  - Wrong technique in drug usage process [Unknown]
  - Drug dose omission [Unknown]
  - Pain [Recovered/Resolved]
